FAERS Safety Report 5969036-3 (Version None)
Quarter: 2008Q4

REPORT INFORMATION
  Report Type: 
  Country: None (occurrence: None)
  Receive Date: 20081126
  Receipt Date: 20081118
  Transmission Date: 20090506
  Serious: Yes (Death, Hospitalization)
  Sender: FDA-Public Use
  Company Number: US-AMGEN-US314743

PATIENT
  Sex: Male

DRUGS (2)
  1. ENBREL [Suspect]
     Indication: PSORIASIS
     Route: 058
     Dates: start: 20070101, end: 20080127
  2. RAPTIVA [Concomitant]
     Indication: PSORIASIS
     Route: 058
     Dates: start: 20050223, end: 20070111

REACTIONS (7)
  - BRAIN HERNIATION [None]
  - CEREBRAL HAEMORRHAGE [None]
  - COMA [None]
  - DISORIENTATION [None]
  - ENCEPHALITIS [None]
  - INFECTION [None]
  - MALAISE [None]
